FAERS Safety Report 8033543-2 (Version None)
Quarter: 2012Q1

REPORT INFORMATION
  Report Type: 
  Country: None (occurrence: None)
  Receive Date: 20120110
  Receipt Date: 20120103
  Transmission Date: 20120608
  Serious: Yes (Other)
  Sender: FDA-Public Use
  Company Number: US-ABBOTT-12P-163-0889023-00

PATIENT
  Sex: Female
  Weight: 104.42 kg

DRUGS (4)
  1. HUMIRA [Suspect]
     Route: 058
     Dates: start: 20111201
  2. HUMIRA [Suspect]
     Indication: PSORIASIS
     Route: 058
     Dates: start: 20110801
  3. ENBREL [Suspect]
     Indication: PSORIASIS
     Dates: start: 20060101, end: 20110801
  4. METHOTREXATE [Suspect]
     Indication: PSORIASIS
     Dates: end: 20110801

REACTIONS (1)
  - HEPATIC CIRRHOSIS [None]
